FAERS Safety Report 5280282-7 (Version None)
Quarter: 2007Q1

REPORT INFORMATION
  Report Type: 
  Country: None (occurrence: None)
  Receive Date: 20070329
  Receipt Date: 20070326
  Transmission Date: 20070707
  Serious: Yes (Other)
  Sender: FDA-Public Use
  Company Number: CA-GLAXOSMITHKLINE-A0644935A

PATIENT
  Age: 71 Year
  Sex: Male

DRUGS (10)
  1. AVODART [Suspect]
     Indication: BENIGN PROSTATIC HYPERPLASIA
     Dosage: 2CAP PER DAY
     Dates: start: 20061101
  2. AVANDIA [Concomitant]
     Indication: DRUG USE FOR UNKNOWN INDICATION
     Dosage: 4MG TWICE PER DAY
     Route: 048
  3. DICLOFENAC SR [Concomitant]
     Dosage: 75MG TWICE PER DAY
     Route: 048
  4. GLICLAZIDE [Concomitant]
     Dosage: 80MG TWICE PER DAY
     Route: 048
  5. FUROSEMIDE [Concomitant]
     Dosage: 40MG TWICE PER DAY
     Route: 048
  6. METFORMIN HCL [Concomitant]
     Dosage: 850MG THREE TIMES PER DAY
     Route: 048
  7. CARVEDILOL [Concomitant]
     Dosage: 6.25MG TWICE PER DAY
     Route: 048
  8. FLOMAX [Concomitant]
     Dosage: .4MG PER DAY
     Route: 048
  9. DIAZEPAM [Concomitant]
     Dosage: 10MG AS REQUIRED
     Route: 048
  10. NITROGLYCERIN [Concomitant]
     Dosage: 1PAT TWICE PER DAY
     Route: 062

REACTIONS (2)
  - DRUG INEFFECTIVE [None]
  - INTENTIONAL OVERDOSE [None]
